FAERS Safety Report 6386242-7 (Version None)
Quarter: 2009Q3

REPORT INFORMATION
  Report Type: 
  Country: None (occurrence: None)
  Receive Date: 20090929
  Receipt Date: 20090430
  Transmission Date: 20100115
  Serious: No
  Sender: FDA-Public Use
  Company Number: 282447

PATIENT
  Age: 74 Year
  Sex: Male

DRUGS (9)
  1. LUCENTIS [Suspect]
     Indication: MACULAR DEGENERATION
     Dosage: 0.5 MG, Q 4-6 WEEKS, INTRAVITREAL
     Dates: start: 20050101
  2. XX [Concomitant]
     Indication: MACULAR DEGENERATION
     Dosage: 0.5 MG, Q 4-6 WEEKS, INTRAVITREAL
     Dates: start: 20050101
  3. OCUVITE (ASCORBIC ACID, BETA CAROTENE, COOPER NOS, LUTEN, SELENIUM, VI [Concomitant]
  4. LUTEIN (LUTEIN) [Concomitant]
  5. BILBERRY (MYRTILLUS) [Concomitant]
  6. GLUCOSAMINE SULFATE (GLUCOSAMINE SULFATE) [Concomitant]
  7. CALTRATE (CALCIUM CARBONATE) [Concomitant]
  8. TETRACYCLINE [Concomitant]
  9. ASPIRIN [Concomitant]

REACTIONS (1)
  - VISUAL IMPAIRMENT [None]
